FAERS Safety Report 20311142 (Version 5)
Quarter: 2023Q1

REPORT INFORMATION
  Report Type: Report from Study
  Country: CN (occurrence: CN)
  Receive Date: 20220107
  Receipt Date: 20230215
  Transmission Date: 20230418
  Serious: Yes (Hospitalization)
  Sender: FDA-Public Use
  Company Number: CN-JNJFOC-20211263569

PATIENT
  Age: 52 Year
  Sex: Female
  Weight: 61.5 kg

DRUGS (7)
  1. AMIVANTAMAB [Suspect]
     Active Substance: AMIVANTAMAB
     Indication: Non-small cell lung cancer metastatic
     Dosage: CX1D15 COMPLETED ON 28-DEC-2021 (MOST RECENT DOSE)
     Route: 042
     Dates: start: 20211213
  2. CARBOPLATIN [Concomitant]
     Active Substance: CARBOPLATIN
     Indication: Non-small cell lung cancer metastatic
     Route: 042
     Dates: start: 20210714, end: 20210916
  3. PEMETREXED [Concomitant]
     Active Substance: PEMETREXED
     Indication: Non-small cell lung cancer metastatic
     Route: 042
     Dates: start: 20210714, end: 20211102
  4. BICYCLOL [Concomitant]
     Active Substance: BICYCLOL
     Indication: Alanine aminotransferase increased
     Route: 048
     Dates: start: 20210728, end: 20220801
  5. BICYCLOL [Concomitant]
     Active Substance: BICYCLOL
     Indication: Aspartate aminotransferase increased
  6. COMPOUND POLYMYXIN B [Concomitant]
     Indication: Rash
     Dosage: DOSE: 1 (DOSAGE UNIT NOT PROVIDED)
     Route: 061
     Dates: start: 20211229
  7. LONG ZHU [Concomitant]
     Indication: Rash
     Route: 061
     Dates: start: 20211129

REACTIONS (1)
  - Pleural effusion [Recovered/Resolved]

NARRATIVE: CASE EVENT DATE: 20211228
